FAERS Safety Report 24678362 (Version 3)
Quarter: 2025Q2

REPORT INFORMATION
  Report Type: Spontaneous
  Country: JP (occurrence: JP)
  Receive Date: 20241129
  Receipt Date: 20250429
  Transmission Date: 20250717
  Serious: Yes (Death)
  Sender: ALEXION PHARMACEUTICALS
  Company Number: JP-ASTRAZENECA-240132870_064320_P_1

PATIENT
  Age: 92 Year

DRUGS (4)
  1. ANDEXXA [Suspect]
     Active Substance: ANDEXANET ALFA
     Indication: Haemorrhage
  2. RIVAROXABAN [Concomitant]
     Active Substance: RIVAROXABAN
  3. RIVAROXABAN [Concomitant]
     Active Substance: RIVAROXABAN
  4. RIVAROXABAN [Concomitant]
     Active Substance: RIVAROXABAN

REACTIONS (1)
  - Azotaemia [Fatal]
